FAERS Safety Report 12917290 (Version 3)
Quarter: 2017Q3

REPORT INFORMATION
  Report Type: Report from Study
  Country: IT (occurrence: IT)
  Receive Date: 20161107
  Receipt Date: 20170707
  Transmission Date: 20171127
  Serious: Yes (Death, Hospitalization, Other)
  Sender: FDA-Public Use
  Company Number: IT-BRISTOL-MYERS SQUIBB COMPANY-BMS-2016-092539

PATIENT
  Age: 57 Year
  Sex: Male

DRUGS (1)
  1. NIVOLUMAB [Suspect]
     Active Substance: NIVOLUMAB
     Indication: HODGKIN^S DISEASE
     Dosage: 3 MG/KG, Q2WK
     Route: 042
     Dates: start: 20160511

REACTIONS (6)
  - Aspartate aminotransferase increased [Recovered/Resolved]
  - Transaminases increased [Recovered/Resolved]
  - Hepatorenal syndrome [Fatal]
  - Acute myocardial infarction [Recovered/Resolved]
  - Alanine aminotransferase increased [Recovered/Resolved]
  - Pyrexia [Recovered/Resolved]

NARRATIVE: CASE EVENT DATE: 20160511
